FAERS Safety Report 15408922 (Version 1)
Quarter: 2018Q3

REPORT INFORMATION
  Report Type: Spontaneous
  Country: US (occurrence: US)
  Receive Date: 20180920
  Receipt Date: 20180920
  Transmission Date: 20181010
  Serious: Yes (Other)
  Sender: FDA-Public Use
  Company Number: US-JNJFOC-20180913937

PATIENT
  Age: 21 Year
  Sex: Male
  Weight: 117.94 kg

DRUGS (2)
  1. QUETIAPINE. [Concomitant]
     Active Substance: QUETIAPINE
     Indication: SLEEP DISORDER
     Route: 065
  2. INVEGA SUSTENNA [Suspect]
     Active Substance: PALIPERIDONE PALMITATE
     Indication: PRODUCT USED FOR UNKNOWN INDICATION
     Route: 030
     Dates: start: 20180829

REACTIONS (3)
  - Drug dose omission [Unknown]
  - Suicidal ideation [Unknown]
  - Psychotic symptom [Unknown]

NARRATIVE: CASE EVENT DATE: 2018
